FAERS Safety Report 5598425-4 (Version None)
Quarter: 2007Q4

REPORT INFORMATION
  Report Type: 
  Country: None (occurrence: None)
  Receive Date: 20071226
  Receipt Date: 20071024
  Transmission Date: 20080405
  Serious: No
  Sender: FDA-Public Use
  Company Number: 2007PV033365

PATIENT
  Age: 54 Year
  Sex: Female

DRUGS (5)
  1. SYMLIN [Suspect]
     Indication: TYPE 2 DIABETES MELLITUS
     Dosage: 120, 60 MCG, TID, SC
     Route: 058
     Dates: start: 20070501, end: 20070101
  2. SYMLIN [Suspect]
     Indication: TYPE 2 DIABETES MELLITUS
     Dosage: 120, 60 MCG, TID, SC
     Route: 058
     Dates: start: 20070101
  3. SYMLIN [Suspect]
     Indication: TYPE 2 DIABETES MELLITUS
     Dosage: 120, 60 MCG, TID, SC
     Route: 058
     Dates: start: 20070601
  4. LANTUS [Concomitant]
  5. MEDICATION FOR NEUROPATHY [Concomitant]

REACTIONS (1)
  - INJECTION SITE PAIN [None]
